FAERS Safety Report 8379091-1 (Version None)
Quarter: 2012Q2

REPORT INFORMATION
  Report Type: 
  Country: None (occurrence: None)
  Receive Date: 20120522
  Receipt Date: 20120522
  Transmission Date: 20120825
  Serious: Yes (Life-Threatening, Hospitalization)
  Sender: FDA-Public Use
  Company Number: None

PATIENT
  Age: 52 Year
  Sex: Male
  Weight: 74.8 kg

DRUGS (1)
  1. ACETAMINOPHEN/HYDROCODONE BITARTRATE [Suspect]
     Indication: PAIN
     Dosage: 2 TAB TID PO
     Route: 048
     Dates: start: 20120301, end: 20120318

REACTIONS (2)
  - METABOLIC ACIDOSIS [None]
  - INBORN ERROR OF METABOLISM [None]
